FAERS Safety Report 20771208 (Version 1)
Quarter: 2022Q2

REPORT INFORMATION
  Report Type: Spontaneous
  Country: GB (occurrence: GB)
  Receive Date: 20220429
  Receipt Date: 20220429
  Transmission Date: 20220721
  Serious: Yes (Hospitalization)
  Sender: FDA-Public Use
  Company Number: GB-MYLANLABS-2022M1031799

PATIENT
  Sex: Male

DRUGS (3)
  1. CLOZARIL [Suspect]
     Active Substance: CLOZAPINE
     Indication: Schizophrenia
     Dosage: UNK
     Route: 048
     Dates: start: 20211207
  2. CLOZARIL [Suspect]
     Active Substance: CLOZAPINE
     Dosage: UNK(550)
  3. CLOZARIL [Suspect]
     Active Substance: CLOZAPINE
     Dosage: UNK(525)

REACTIONS (1)
  - Schizophrenia [Unknown]
